FAERS Safety Report 5495485-6 (Version None)
Quarter: 2007Q4

REPORT INFORMATION
  Report Type: 
  Country: None (occurrence: None)
  Receive Date: 20071023
  Receipt Date: 20071011
  Transmission Date: 20080405
  Serious: Yes (Hospitalization, Other)
  Sender: FDA-Public Use
  Company Number: 2007S1009906

PATIENT
  Age: 3 Year
  Sex: Female
  Weight: 22.6799 kg

DRUGS (13)
  1. AMLODIPINE BESYLATE [Suspect]
     Indication: HYPERTENSION
     Dosage: DAILY;ORAL
     Route: 048
     Dates: start: 20040401
  2. AMLODIPINE BESYLATE [Suspect]
     Indication: SECONDARY HYPERTENSION
     Dosage: DAILY;ORAL
     Route: 048
     Dates: start: 20040401
  3. ENALAPRIL MALEATE [Suspect]
     Indication: HYPERTENSION
     Dates: start: 20040501, end: 20060601
  4. ENALAPRIL MALEATE [Suspect]
     Indication: SECONDARY HYPERTENSION
     Dates: start: 20040501, end: 20060601
  5. ENALAPRIL MALEATE [Suspect]
     Indication: HYPERTENSION
     Dates: start: 20070907, end: 20071002
  6. ENALAPRIL MALEATE [Suspect]
     Indication: SECONDARY HYPERTENSION
     Dates: start: 20070907, end: 20071002
  7. ENALAPRIL MALEATE [Suspect]
     Indication: HYPERTENSION
     Dosage: DAILY;ORAL
     Route: 048
     Dates: start: 20040501, end: 20060601
  8. ENALAPRIL MALEATE [Suspect]
     Indication: HYPERTENSION
     Dosage: DAILY;ORAL
     Route: 048
     Dates: start: 20070907, end: 20071002
  9. PREVACID [Suspect]
     Dates: start: 20040101, end: 20060601
  10. DIFLUCAN [Suspect]
     Indication: FUNGAL INFECTION
     Dosage: ORAL
     Route: 048
     Dates: start: 20070829, end: 20070925
  11. PREDNISOLONE [Concomitant]
  12. CYCLOSPORINE [Concomitant]
  13. COZAAR [Concomitant]

REACTIONS (18)
  - ANGIOEDEMA [None]
  - ASPIRATION BONE MARROW ABNORMAL [None]
  - AURICULAR SWELLING [None]
  - BACTERIAL SEPSIS [None]
  - BLOOD PRESSURE INADEQUATELY CONTROLLED [None]
  - DERMATITIS ALLERGIC [None]
  - DRUG HYPERSENSITIVITY [None]
  - HELICOBACTER SEPSIS [None]
  - LIP SWELLING [None]
  - NEUTROPENIA [None]
  - RESPIRATORY SYNCYTIAL VIRUS INFECTION [None]
  - SEPSIS [None]
  - SKIN CHAPPED [None]
  - SKIN EXFOLIATION [None]
  - SKIN HAEMORRHAGE [None]
  - STAPHYLOCOCCAL SEPSIS [None]
  - SWELLING FACE [None]
  - URTICARIA [None]
